FAERS Safety Report 5852952-0 (Version None)
Quarter: 2008Q3

REPORT INFORMATION
  Report Type: 
  Country: None (occurrence: None)
  Receive Date: 20080821
  Receipt Date: 20080807
  Transmission Date: 20090109
  Serious: Yes (Other)
  Sender: FDA-Public Use
  Company Number: US-ASTRAZENECA-2008UW16276

PATIENT
  Age: 79 Year
  Sex: Female
  Weight: 77.1 kg

DRUGS (7)
  1. ARIMIDEX [Suspect]
     Indication: BREAST CANCER FEMALE
     Route: 048
  2. COZAAR [Concomitant]
  3. FUROSEMIDE [Concomitant]
  4. PREVACID [Concomitant]
  5. REGLAN [Concomitant]
  6. LIPITOR [Concomitant]
  7. NASONEX [Concomitant]

REACTIONS (3)
  - ARTHRITIS [None]
  - ARTHROPATHY [None]
  - HIP ARTHROPLASTY [None]
